FAERS Safety Report 20405512 (Version 1)
Quarter: 2022Q1

REPORT INFORMATION
  Report Type: Spontaneous
  Country: CA (occurrence: CA)
  Receive Date: 20220131
  Receipt Date: 20220131
  Transmission Date: 20220423
  Serious: Yes (Death)
  Sender: FDA-Public Use
  Company Number: CA-PFIZER INC-2020291233

PATIENT
  Age: 53 Year
  Sex: Female

DRUGS (3)
  1. IBRANCE [Suspect]
     Active Substance: PALBOCICLIB
     Dosage: 100 MG, CYCLIC (EACH DAY FOR 21 DAYS)
     Route: 048
     Dates: start: 20200730
  2. IBRANCE [Suspect]
     Active Substance: PALBOCICLIB
     Dosage: UNK
     Dates: start: 20200806
  3. LETROZOLE [Suspect]
     Active Substance: LETROZOLE
     Dosage: 1 DF, 1X/DAY
     Route: 048
     Dates: start: 20200730

REACTIONS (1)
  - Death [Fatal]
